FAERS Safety Report 5464678-6 (Version None)
Quarter: 2007Q3

REPORT INFORMATION
  Report Type: 
  Country: None (occurrence: None)
  Receive Date: 20070921
  Receipt Date: 20070912
  Transmission Date: 20080115
  Serious: Yes (Other)
  Sender: FDA-Public Use
  Company Number: US-PFIZER INC-2006051356

PATIENT
  Sex: Female
  Weight: 90.7 kg

DRUGS (15)
  1. TIKOSYN [Suspect]
     Indication: ARRHYTHMIA
     Route: 048
  2. AVELOX [Interacting]
     Indication: PNEUMONIA
     Route: 065
  3. ALLOPURINOL [Concomitant]
     Route: 065
  4. NEORAL [Concomitant]
     Route: 065
  5. NEXIUM [Concomitant]
     Route: 065
  6. LASIX [Concomitant]
     Route: 065
  7. POTASSIUM CHLORIDE [Concomitant]
     Route: 065
  8. PREDNISONE [Concomitant]
     Route: 065
  9. CUMADIN [Concomitant]
     Route: 065
  10. ZESTRIL [Concomitant]
     Route: 065
  11. ATENOLOL [Concomitant]
     Route: 065
  12. VITAMIN CAP [Concomitant]
     Route: 065
  13. VITAMIN B [Concomitant]
     Route: 065
  14. CALCIUM W/MAGNESIUM [Concomitant]
  15. IRON [Concomitant]
     Route: 065

REACTIONS (2)
  - ARRHYTHMIA [None]
  - DRUG INTERACTION [None]
